FAERS Safety Report 19972374 (Version 1)
Quarter: 2021Q4

REPORT INFORMATION
  Report Type: Spontaneous
  Country: BG (occurrence: BG)
  Receive Date: 20211020
  Receipt Date: 20211020
  Transmission Date: 20220303
  Serious: Yes (Death, Hospitalization, Other)
  Sender: FDA-Public Use
  Company Number: BG-002147023-NVSC2021BG231073

PATIENT

DRUGS (1)
  1. RUXOLITINIB [Suspect]
     Active Substance: RUXOLITINIB
     Indication: Myelofibrosis
     Dosage: 20 MG, BID
     Route: 048
     Dates: start: 201606, end: 202102

REACTIONS (5)
  - COVID-19 [Unknown]
  - Leukocytosis [Not Recovered/Not Resolved]
  - Peritonitis [Fatal]
  - Thrombocytosis [Not Recovered/Not Resolved]
  - Tuberculosis [Unknown]

NARRATIVE: CASE EVENT DATE: 20210101
